FAERS Safety Report 24204542 (Version 1)
Quarter: 2024Q3

REPORT INFORMATION
  Report Type: Other
  Country: PT (occurrence: PT)
  Receive Date: 20240813
  Receipt Date: 20240813
  Transmission Date: 20241017
  Serious: Yes (Death)
  Sender: ORBION PHARMACEUTICALS
  Company Number: PT-OrBion Pharmaceuticals Private Limited-2160335

PATIENT
  Age: 68 Year
  Sex: Female

DRUGS (4)
  1. LEVOFLOXACIN [Suspect]
     Active Substance: LEVOFLOXACIN
     Indication: Urinary tract infection
     Route: 065
  2. CEFTRIAXONE [Concomitant]
     Active Substance: CEFTRIAXONE\CEFTRIAXONE SODIUM
     Route: 065
  3. Cloxacylin [Concomitant]
     Route: 065
  4. DAPTOMYCIN [Concomitant]
     Active Substance: DAPTOMYCIN
     Route: 065

REACTIONS (2)
  - Drug ineffective [Fatal]
  - Acute respiratory failure [Fatal]
